FAERS Safety Report 5912130-3 (Version None)
Quarter: 2008Q4

REPORT INFORMATION
  Report Type: 
  Country: None (occurrence: None)
  Receive Date: 20081003
  Receipt Date: 20081003
  Transmission Date: 20090506
  Serious: No
  Sender: FDA-Public Use
  Company Number: None

PATIENT
  Age: 55 Year
  Sex: Male

DRUGS (1)
  1. CHLORTHALIDONE [Suspect]
     Indication: HYPERTENSION
     Dosage: 12.5 MG EVERY DAY PO
     Route: 048
     Dates: end: 20080306

REACTIONS (3)
  - HYPOTENSION [None]
  - RENAL FAILURE ACUTE [None]
  - TREATMENT NONCOMPLIANCE [None]
